FAERS Safety Report 5103798-2 (Version None)
Quarter: 2006Q3

REPORT INFORMATION
  Report Type: 
  Country: None (occurrence: None)
  Receive Date: 20060911
  Receipt Date: 20060829
  Transmission Date: 20061208
  Serious: Yes (Other)
  Sender: FDA-Public Use
  Company Number: 2006105658

PATIENT
  Age: 84 Year
  Sex: Male
  Weight: 91 kg

DRUGS (6)
  1. SUTENT [Suspect]
     Indication: METASTATIC RENAL CELL CARCINOMA
     Dosage: 50 MG (50 MG, 1 IN 1 D), ORAL
     Route: 048
     Dates: start: 20060807, end: 20060828
  2. SENOKOT [Concomitant]
  3. ZYLOPRIM [Concomitant]
  4. NATRILIX (INDAPAMIDE) [Concomitant]
  5. NORVASC [Concomitant]
  6. ZOLADEX [Concomitant]

REACTIONS (4)
  - FALL [None]
  - LETHARGY [None]
  - MOBILITY DECREASED [None]
  - THROMBOCYTOPENIA [None]
